FAERS Safety Report 5479026-5 (Version None)
Quarter: 2007Q4

REPORT INFORMATION
  Report Type: 
  Country: None (occurrence: None)
  Receive Date: 20071006
  Receipt Date: 20070925
  Transmission Date: 20080405
  Serious: Yes (Hospitalization)
  Sender: FDA-Public Use
  Company Number: AT-PFIZER INC-2007080785

PATIENT
  Sex: Female
  Weight: 67 kg

DRUGS (12)
  1. SUTENT [Suspect]
     Indication: BREAST CANCER
     Route: 048
  2. TAXOTERE [Suspect]
     Indication: BREAST CANCER
     Route: 042
  3. EUTHYROX [Concomitant]
     Route: 048
  4. MIRTAZAPINE [Concomitant]
     Route: 048
  5. PANTOPRAZOL [Concomitant]
     Route: 048
  6. HALCION [Concomitant]
     Route: 048
  7. ACTONEL [Concomitant]
     Route: 048
  8. AMLODIPINE [Concomitant]
     Route: 048
  9. ENALAPRIL MALEATE [Concomitant]
     Route: 048
  10. CALCIMAGON [Concomitant]
     Route: 048
  11. VOLTAREN [Concomitant]
     Route: 048
  12. DEXAMETHASONE 0.5MG TAB [Concomitant]
     Route: 048
     Dates: start: 20070919, end: 20070921

REACTIONS (1)
  - CHEST PAIN [None]
